FAERS Safety Report 8298541-2 (Version None)
Quarter: 2012Q2

REPORT INFORMATION
  Report Type: 
  Country: None (occurrence: None)
  Receive Date: 20120419
  Receipt Date: 20120409
  Transmission Date: 20120825
  Serious: Yes (Hospitalization, Other)
  Sender: FDA-Public Use
  Company Number: US-ROCHE-794230

PATIENT
  Sex: Female
  Weight: 76.272 kg

DRUGS (2)
  1. ACCUTANE [Suspect]
     Indication: ACNE
     Route: 065
  2. ACCUTANE [Suspect]
     Dates: start: 19990101, end: 20000101

REACTIONS (10)
  - ANXIETY [None]
  - COLITIS ULCERATIVE [None]
  - INFLAMMATORY BOWEL DISEASE [None]
  - UTERINE PROLAPSE [None]
  - DEHYDRATION [None]
  - PREGNANCY [None]
  - IRRITABLE BOWEL SYNDROME [None]
  - TREATMENT NONCOMPLIANCE [None]
  - RECTAL POLYP [None]
  - MATERNAL EXPOSURE DURING DELIVERY [None]
